FAERS Safety Report 5675298-2 (Version None)
Quarter: 2008Q2

REPORT INFORMATION
  Report Type: 
  Country: None (occurrence: None)
  Receive Date: 20080307
  Receipt Date: 20071012
  Transmission Date: 20081010
  Serious: Yes (Other)
  Sender: FDA-Public Use
  Company Number: US200710003784

PATIENT
  Age: 55 Year
  Sex: Female

DRUGS (1)
  1. GEMZAR [Suspect]
     Indication: BREAST CANCER METASTATIC
     Dosage: 1000 MG/M2, OTHER, INTRAVENOUS
     Route: 042

REACTIONS (1)
  - BLOOD CREATININE INCREASED [None]
